FAERS Safety Report 6419337-X (Version None)
Quarter: 2009Q4

REPORT INFORMATION
  Report Type: 
  Country: None (occurrence: None)
  Receive Date: 20091029
  Receipt Date: 20091026
  Transmission Date: 20100525
  Serious: Yes (Hospitalization)
  Sender: FDA-Public Use
  Company Number: US-ELI_LILLY_AND_COMPANY-US200910006834

PATIENT
  Sex: Female
  Weight: 117.91 kg

DRUGS (7)
  1. BYETTA [Suspect]
     Indication: TYPE 2 DIABETES MELLITUS
     Dosage: 5 UG, 2/D
     Route: 058
     Dates: start: 20070101, end: 20080101
  2. BYETTA [Suspect]
     Dosage: 10 UG, 2/D
     Route: 058
     Dates: start: 20080101
  3. BYETTA [Suspect]
     Dosage: 10 UG, 2/D
     Route: 058
     Dates: start: 20080101
  4. BYETTA [Suspect]
     Dosage: 10 UG, 2/D
     Route: 058
     Dates: start: 20080101
  5. ATACAND [Concomitant]
     Indication: BLOOD PRESSURE INCREASED
     Dosage: 32 MG, DAILY (1/D)
     Route: 048
  6. NORVASC [Concomitant]
     Indication: BLOOD PRESSURE INCREASED
     Dosage: 10 MG, DAILY (1/D)
     Route: 048
  7. HYDROCHLOROTHIAZIDE [Concomitant]
     Indication: BLOOD PRESSURE INCREASED
     Dosage: 25 MG, DAILY (1/D)
     Route: 048

REACTIONS (2)
  - ARTHRALGIA [None]
  - ARTHRITIS [None]
